FAERS Safety Report 16882188 (Version 2)
Quarter: 2019Q4

REPORT INFORMATION
  Report Type: Spontaneous
  Country: US (occurrence: US)
  Receive Date: 20191003
  Receipt Date: 20191122
  Transmission Date: 20200122
  Serious: No
  Sender: FDA-Public Use
  Company Number: US-ALNYLAM PHARMACEUTICALS, INC.-ALN-2019-000244

PATIENT
  Sex: Female

DRUGS (1)
  1. ONPATTRO [Suspect]
     Active Substance: PATISIRAN SODIUM
     Indication: HEREDITARY NEUROPATHIC AMYLOIDOSIS
     Dosage: UNK
     Route: 042
     Dates: start: 20190312

REACTIONS (6)
  - Flushing [Recovered/Resolved]
  - Muscle spasms [Unknown]
  - Back pain [Unknown]
  - Infusion related reaction [Unknown]
  - Lacrimation increased [Recovered/Resolved]
  - Burning sensation [Recovered/Resolved]
